APPROVED DRUG PRODUCT: RANOLAZINE
Active Ingredient: RANOLAZINE
Strength: 1GM
Dosage Form/Route: TABLET, EXTENDED RELEASE;ORAL
Application: A212930 | Product #002
Applicant: ACCORD HEALTHCARE INC
Approved: May 18, 2021 | RLD: No | RS: No | Type: DISCN